FAERS Safety Report 21044984 (Version 1)
Quarter: 2022Q3

REPORT INFORMATION
  Report Type: Spontaneous
  Country: TW (occurrence: TW)
  Receive Date: 20220705
  Receipt Date: 20220705
  Transmission Date: 20221026
  Serious: Yes (Hospitalization, Other)
  Sender: FDA-Public Use
  Company Number: TW-ANIPHARMA-2022-TW-000041

PATIENT
  Age: 69 Year
  Sex: Female

DRUGS (3)
  1. FLUCONAZOLE [Suspect]
     Active Substance: FLUCONAZOLE
     Indication: Tinea capitis
     Dosage: 300 MG DAILY
     Route: 048
  2. BIPERIDEN [Suspect]
     Active Substance: BIPERIDEN
     Indication: Parkinsonism
     Dosage: 4 MG DAILY
  3. RISPERIDONE [Concomitant]
     Active Substance: RISPERIDONE
     Dosage: 2 MG DAILY

REACTIONS (2)
  - Drug interaction [Recovered/Resolved]
  - Delirium [Recovered/Resolved]
